FAERS Safety Report 14615075 (Version 1)
Quarter: 2018Q1

REPORT INFORMATION
  Report Type: Spontaneous
  Country: IT (occurrence: IT)
  Receive Date: 20180308
  Receipt Date: 20180308
  Transmission Date: 20180509
  Serious: Yes (Other)
  Sender: FDA-Public Use
  Company Number: IT-MERCK KGAA-2043342

PATIENT
  Age: 51 Year
  Sex: Female

DRUGS (8)
  1. PROPRANOLOL [Suspect]
     Active Substance: PROPRANOLOL HYDROCHLORIDE
  2. VITAMIN D3 [Suspect]
     Active Substance: CHOLECALCIFEROL
  3. LANSOPRAZOLE. [Suspect]
     Active Substance: LANSOPRAZOLE
  4. CABOZANTINIB (CABOZANTINIB)(CABOZANTINIB) [Suspect]
     Active Substance: CABOZANTINIB
     Route: 048
  5. LOPERAMIDE (LOPERAMIDE)(LOPERAMIDE) [Suspect]
     Active Substance: LOPERAMIDE
  6. DULOXETINE. [Suspect]
     Active Substance: DULOXETINE
  7. CALCITRIOL. [Suspect]
     Active Substance: CALCITRIOL
  8. NOVOTHYROX [Suspect]
     Active Substance: LEVOTHYROXINE SODIUM
     Indication: PRODUCT USED FOR UNKNOWN INDICATION

REACTIONS (1)
  - Osteonecrosis [Recovered/Resolved]
